FAERS Safety Report 20060927 (Version 9)
Quarter: 2022Q3

REPORT INFORMATION
  Report Type: Report from Study
  Country: GB (occurrence: GB)
  Receive Date: 20211112
  Receipt Date: 20220704
  Transmission Date: 20221027
  Serious: Yes (Hospitalization, Other)
  Sender: FDA-Public Use
  Company Number: GB-CELLTRION INC.-2021GB015113

PATIENT

DRUGS (57)
  1. TRASTUZUMAB [Suspect]
     Active Substance: TRASTUZUMAB
     Indication: HER2 positive breast cancer
     Dosage: 900 MG, EVERY 3 WEEKS (LOADING DOSE) (PHARMACEUTICAL DOSE FORM: 230)
     Route: 041
     Dates: start: 20160303, end: 20160303
  2. TRASTUZUMAB [Suspect]
     Active Substance: TRASTUZUMAB
     Dosage: 900 MG, EVERY 3 WEEKS (LOADING DOSE) (PHARMACEUTICAL DOSE FORM: 230)
     Route: 042
     Dates: start: 20160303, end: 20160303
  3. TRASTUZUMAB [Suspect]
     Active Substance: TRASTUZUMAB
     Dosage: 675 MG, EVERY 3 WEEKS (MAINTENANCE DOSES) (PHARMACEUTICAL DOSE FORM: 230)
     Route: 042
     Dates: start: 20160324, end: 20210119
  4. TRASTUZUMAB [Suspect]
     Active Substance: TRASTUZUMAB
     Dosage: 675 MG, EVERY 3 WEEKS (MAINTENANCE DOSES) (PHARMACEUTICAL DOSE FORM: 230)
     Route: 042
     Dates: start: 20160324, end: 20210119
  5. TRASTUZUMAB [Suspect]
     Active Substance: TRASTUZUMAB
     Indication: Product used for unknown indication
     Dosage: 600 MG, EVERY 3 WEEKS (PHARMACEUTICAL DOSE FORM: 231)
     Route: 058
     Dates: start: 20210514
  6. DOCETAXEL [Suspect]
     Active Substance: DOCETAXEL
     Indication: HER2 positive breast cancer
     Dosage: 148 MG, EVERY 3 WEEKS (CUMULATIVE DOSE TO FIRST REACTION: 77.52381MG)
     Route: 042
     Dates: start: 20160304, end: 20160617
  7. DOCETAXEL [Suspect]
     Active Substance: DOCETAXEL
     Dosage: 148 MG EVERY 3 WEEKS
     Route: 042
     Dates: start: 20160304
  8. PERTUZUMAB [Suspect]
     Active Substance: PERTUZUMAB
     Indication: HER2 positive breast cancer
     Dosage: 840 MG, EVERY 3 WEEKS (LOADING DOSE) (PHARMACEUTICAL DOSE FORM: 230)
     Route: 042
     Dates: start: 20160303, end: 20160303
  9. PERTUZUMAB [Suspect]
     Active Substance: PERTUZUMAB
     Indication: Breast cancer metastatic
     Dosage: 840 MG, EVERY 3 WEEKS (LOADING DOSE) (PHARMACEUTICAL DOSE FORM: 230)
     Route: 042
     Dates: start: 20160303, end: 20160303
  10. PERTUZUMAB [Suspect]
     Active Substance: PERTUZUMAB
     Dosage: 420 MG, EVERY 3 WEEKS (DOSAGE TEXT: MAINTENANCE DOSE)
     Route: 042
     Dates: start: 20160324
  11. PERTUZUMAB [Suspect]
     Active Substance: PERTUZUMAB
     Dosage: 420 MG, EVERY 3 WEEKS (DOSAGE TEXT: MAINTENANCE DOSE)
     Route: 042
     Dates: start: 20160324
  12. ADO-TRASTUZUMAB EMTANSINE [Suspect]
     Active Substance: ADO-TRASTUZUMAB EMTANSINE
     Indication: HER2 positive breast cancer
     Dosage: UNK
     Route: 042
     Dates: start: 202102, end: 202104
  13. XGEVA [Suspect]
     Active Substance: DENOSUMAB
     Indication: Bone disorder
     Dosage: 120 MG
     Route: 042
     Dates: start: 20160226
  14. AMITRIPTYLINE [Concomitant]
     Active Substance: AMITRIPTYLINE
     Indication: Acetabulum fracture
     Dosage: 10 MG (PHARMACEUTICAL DOSE FORM: 245`)
     Route: 048
     Dates: start: 20170522
  15. AMITRIPTYLINE HYDROCHLORIDE [Concomitant]
     Active Substance: AMITRIPTYLINE HYDROCHLORIDE
     Indication: Acetabulum fracture
     Dosage: 10 MG, UNK (PHARMACEUTICAL DOSE FORM: 245)
     Route: 048
     Dates: start: 20170522
  16. ANUSOL HC [BENZYL BENZOATE;BISMUTH OXIDE;BISMUTH SUBGALLATE;HYDROCORTI [Concomitant]
     Dosage: 3 UNK, 1X/DAY
     Route: 061
     Dates: start: 20160324
  17. ANUSOL HC [BENZYL BENZOATE;BISMUTH OXIDE;BISMUTH SUBGALLATE;HYDROCORTI [Concomitant]
     Dosage: UNK UNK QD
     Route: 061
     Dates: start: 20160324
  18. APIXABAN [Concomitant]
     Active Substance: APIXABAN
     Indication: Acetabulum fracture
     Dosage: 5 MG, EVERY 0.5 DAY  (PHARMACEUTICAL DOSE FORM: 245)
     Route: 048
     Dates: start: 20170512
  19. CALCIUM\CHOLECALCIFEROL [Concomitant]
     Active Substance: CALCIUM\CHOLECALCIFEROL
     Dosage: 1 DF, EVERY 0.5 DAY (PHARMACEUTICAL DOSE FORM: 245)
     Route: 048
     Dates: start: 20160225
  20. CALCIUM\CHOLECALCIFEROL [Concomitant]
     Active Substance: CALCIUM\CHOLECALCIFEROL
     Dosage: 1 DOSAGE FORMM, QD
     Route: 048
     Dates: start: 20160225
  21. NEOMYCIN SULFATE [Concomitant]
     Active Substance: NEOMYCIN SULFATE
     Dosage: 2 UNK, QD (OINTMENT, CHLORHEXIDINE HYDROCHLORIDE 0.1% AND NEOMYCIN SULPHATE 0.5%) (PHARMACEUTICAL DO
     Route: 061
     Dates: start: 20160324
  22. CHLORHEXIDINE HYDROCHLORIDE;NEOMYCIN SULFATE [Concomitant]
     Dosage: UNK, EVERY 0.5 DAY (OINTMENT, CHLORHEXIDINE HYDROCHLORIDE 0.1% AND NEOMYCIN SULPHATE 0.5%)
     Route: 061
     Dates: start: 20160324
  23. COCODAMOL [Concomitant]
     Active Substance: ACETAMINOPHEN\CODEINE PHOSPHATE
     Dosage: 30 MG, EVERY 0.25 DAY (PHARMACEUTICAL DOSE FORM: 245)
     Route: 048
     Dates: end: 201603
  24. COCODAMOL [Concomitant]
     Active Substance: ACETAMINOPHEN\CODEINE PHOSPHATE
     Dosage: 30 MG, EVERY 0.25 DAY (PHARMACEUTICAL DOSE FORM: 245)
     Route: 048
     Dates: start: 201603
  25. COCODAMOL [Concomitant]
     Active Substance: ACETAMINOPHEN\CODEINE PHOSPHATE
     Dosage: 30 MG, EVERY 0.33 DAY (PHARMACEUTICAL DOSE FORM: 245)
     Route: 048
     Dates: start: 20160912
  26. COCODAMOL [Concomitant]
     Active Substance: ACETAMINOPHEN\CODEINE PHOSPHATE
     Dosage: 30 MG, EVERY 0.25 DAY (PHARMACEUTICAL DOSE FORM: 245)
     Route: 048
     Dates: start: 20160912
  27. COCODAMOL [Concomitant]
     Active Substance: ACETAMINOPHEN\CODEINE PHOSPHATE
     Dosage: 30 MG, EVERY 0.25 (PHARMACEUTICAL DOSE FORM: 245)
     Route: 048
     Dates: end: 2016
  28. COCODAMOL [Concomitant]
     Active Substance: ACETAMINOPHEN\CODEINE PHOSPHATE
     Dosage: 30 MG
     Route: 048
     Dates: start: 2016
  29. CODEINE PHOSPHATE [Concomitant]
     Active Substance: CODEINE PHOSPHATE
     Dosage: 90 MG, 1X/DAY (PHARMACEUTICAL DOSE FORM: 245)
     Route: 048
     Dates: start: 20160912
  30. DENOSUMAB [Concomitant]
     Active Substance: DENOSUMAB
     Indication: Bone disorder
     Dosage: 120 MG, ONCE/ MINUTE
     Route: 058
     Dates: start: 20160226
  31. DEXAMETHASONE [Concomitant]
     Active Substance: DEXAMETHASONE
     Indication: Premedication
     Dosage: 8MG EVERY 0.5 DAY (PHARMACEUTICAL DOSE FORM: 245)
     Route: 048
     Dates: start: 20160302
  32. DICLOFENAC SODIUM [Concomitant]
     Active Substance: DICLOFENAC SODIUM
     Dosage: 1 % (PHARMACEUTICAL DOSE FORM: 95)
     Route: 061
     Dates: start: 20161220
  33. DOMPERIDONE [Concomitant]
     Active Substance: DOMPERIDONE
     Dosage: 10 MG (PHARMACEUTICAL DOSE FORM: 245)
     Route: 048
     Dates: start: 20160302
  34. IBUPROFEN [Concomitant]
     Active Substance: IBUPROFEN
     Dosage: 400MG EVERY 0.25 DAY (PHARMACEUTICAL DOSE FORM: 245)
     Route: 048
  35. LANSOPRAZOLE [Concomitant]
     Active Substance: LANSOPRAZOLE
     Indication: Prophylaxis
     Dosage: 30 UG (PHARMACEUTICAL DOSE FORM: 5)
     Route: 048
     Dates: start: 20160324
  36. LIDOCAINE [Concomitant]
     Active Substance: LIDOCAINE
     Dosage: 700 MG, 1X/DAY
     Route: 062
     Dates: start: 20160307
  37. LOPERAMIDE [Concomitant]
     Active Substance: LOPERAMIDE
     Indication: Prophylaxis
     Dosage: 2 MG, UNK (DOSE FORM: 245)
     Route: 048
     Dates: start: 20160302
  38. LOSARTAN POTASSIUM [Concomitant]
     Active Substance: LOSARTAN POTASSIUM
     Dosage: 50 MG, QD (PHARMACEUTICAL DOSE FORM: 245)
     Route: 048
     Dates: start: 20160506
  39. MENTHOL [Concomitant]
     Active Substance: MENTHOL
     Dosage: 6 %, EVERY 0.33 DAY (PHARMACEUTICAL DOSE FORM: 17)
     Route: 061
     Dates: start: 20160307
  40. MENTHOL [Concomitant]
     Active Substance: MENTHOL
     Dosage: 2 PERCENT, QD
     Route: 061
     Dates: start: 20160307
  41. METFORMIN [Concomitant]
     Active Substance: METFORMIN HYDROCHLORIDE
     Dosage: 850 MG, UNK (PHARMACEUTICAL DOSE FORM: 245)
     Route: 048
  42. NAPROXEN [Concomitant]
     Active Substance: NAPROXEN
     Dosage: 500MG EVERY 0.33 DAY (PHARMACEUTICAL DOSE FORM: 245)
     Route: 048
  43. ORAMORPH SR SUSTAINED RELEASE [Concomitant]
     Active Substance: MORPHINE SULFATE
     Dosage: 10 MG
     Route: 048
  44. ORAMORPH SR SUSTAINED RELEASE [Concomitant]
     Active Substance: MORPHINE SULFATE
     Dosage: 10 MG
     Route: 048
  45. OXYCODONE [Concomitant]
     Active Substance: OXYCODONE
     Dosage: 15 MG (PHARMACEUTICAL DOSE FORM: 245)
     Route: 048
     Dates: start: 20170512
  46. OXYCODONE [Concomitant]
     Active Substance: OXYCODONE
     Dosage: 10 MG (PHARMACEUTICAL DOSE FORM: 245)
     Route: 048
     Dates: start: 20170512
  47. ACETAMINOPHEN [Concomitant]
     Active Substance: ACETAMINOPHEN
     Dosage: 1 G, EVERY 0.33 DAY (PHARMACEUTICAL DOSE FORM: 245)
     Route: 048
     Dates: start: 20160316, end: 20160415
  48. PEGFILGRASTIM [Concomitant]
     Active Substance: PEGFILGRASTIM
     Dosage: 6 MG (ONCE 24 HOURS AFTER CHEMOTHERAPY)
     Route: 058
     Dates: start: 20160302
  49. PREGABALIN [Concomitant]
     Active Substance: PREGABALIN
     Dosage: 75 MG, EVERY 0.5 DAY (PHARMACEUTICAL DOSE FORM: 245)
     Route: 048
     Dates: start: 20160307, end: 20170516
  50. PREGABALIN [Concomitant]
     Active Substance: PREGABALIN
     Dosage: 150 MG, QD (PHARMACEUTICAL DOSE FORM: 245)
     Route: 048
     Dates: start: 20160307
  51. PREGABALIN [Concomitant]
     Active Substance: PREGABALIN
     Dosage: 150 MG, QD (PHARMACEUTICAL DOSE FORM: 245)
     Route: 048
     Dates: start: 20160307
  52. PREGABALIN [Concomitant]
     Active Substance: PREGABALIN
     Dosage: 75 MG, EVERY 0.5 DAY (75 MG, 2X/DAY) (PHARMACEUTICAL DOSE FORM: 245)
     Route: 048
     Dates: start: 20160307
  53. PREGABALIN [Concomitant]
     Active Substance: PREGABALIN
     Dosage: 150 MG, QD (75 MG, 2X/DAY) (PHARMACEUTICAL DOSE FORM: 245)
     Route: 048
     Dates: start: 20160307
  54. PREGABALIN [Concomitant]
     Active Substance: PREGABALIN
     Dosage: 225MG EVERY 0.5 DAY (PHARMACEUTICAL DOSE FORM: 245)
     Route: 048
     Dates: start: 20170516
  55. PREGABALIN [Concomitant]
     Active Substance: PREGABALIN
     Dosage: 450 MG, QD, 225 MG, 2X/DAY (PHARMACEUTICAL DOSE FORM: 245)
     Route: 048
     Dates: start: 20170516
  56. PREGABALIN [Concomitant]
     Active Substance: PREGABALIN
     Dosage: 450 MG, QD, 225 MG, 2X/DAY (PHARMACEUTICAL DOSE FORM: 245)
     Route: 048
     Dates: start: 20170516
  57. MORPHINE SULFATE [Concomitant]
     Active Substance: MORPHINE SULFATE
     Dosage: 10 MG EVERY 0.5 DAY (PHARMACEUTICAL DOSE FORM: 5)
     Route: 048
     Dates: start: 20160311

REACTIONS (13)
  - Autonomic neuropathy [Recovered/Resolved]
  - Hypokalaemia [Recovered/Resolved]
  - Vaginal haemorrhage [Not Recovered/Not Resolved]
  - Neuropathy peripheral [Not Recovered/Not Resolved]
  - Sciatica [Recovered/Resolved]
  - Nail bed tenderness [Recovered/Resolved]
  - Dysuria [Recovered/Resolved]
  - Skin discolouration [Not Recovered/Not Resolved]
  - Localised infection [Recovered/Resolved]
  - Anaemia [Recovered/Resolved]
  - Diarrhoea [Recovered/Resolved]
  - Fatigue [Recovered/Resolved]
  - Off label use [Unknown]

NARRATIVE: CASE EVENT DATE: 20160315
